FAERS Safety Report 4963153-2 (Version None)
Quarter: 2006Q2

REPORT INFORMATION
  Report Type: 
  Country: None (occurrence: None)
  Receive Date: 20060405
  Receipt Date: 20051006
  Transmission Date: 20061013
  Serious: Yes (Death, Hospitalization)
  Sender: FDA-Public Use
  Company Number: US-MERCK-0510USA06205

PATIENT
  Age: 53 Year
  Sex: Male
  Weight: 77 kg

DRUGS (2)
  1. VIOXX [Suspect]
     Indication: BACK PAIN
     Route: 048
     Dates: start: 20000101, end: 20030101
  2. ASPIRIN [Concomitant]
     Route: 065

REACTIONS (39)
  - ACUTE MYOCARDIAL INFARCTION [None]
  - ANGINA UNSTABLE [None]
  - BENIGN PROSTATIC HYPERPLASIA [None]
  - BLINDNESS [None]
  - CARDIOMEGALY [None]
  - CATARACT [None]
  - CELLULITIS [None]
  - CHEST PAIN [None]
  - COLON ADENOMA [None]
  - CONSTIPATION [None]
  - CORONARY ARTERY DISEASE [None]
  - DEATH [None]
  - DECUBITUS ULCER [None]
  - DEPRESSION [None]
  - DIABETES MELLITUS INSULIN-DEPENDENT [None]
  - DIABETIC RETINOPATHY [None]
  - DIVERTICULUM [None]
  - ERUCTATION [None]
  - EYE DISCHARGE [None]
  - EYE HAEMORRHAGE [None]
  - GASTROOESOPHAGEAL REFLUX DISEASE [None]
  - HAEMORRHOIDS [None]
  - HEADACHE [None]
  - HYPERLIPIDAEMIA [None]
  - HYPERTENSION [None]
  - HYPOAESTHESIA [None]
  - INGROWING NAIL [None]
  - MALIGNANT HYPERTENSION [None]
  - NON-CARDIAC CHEST PAIN [None]
  - PAIN [None]
  - PERICARDIAL EFFUSION [None]
  - PROSTATE CANCER [None]
  - PSEUDOPHAKIA [None]
  - RASH [None]
  - RENAL FAILURE [None]
  - RETINAL DISORDER [None]
  - SKIN LESION [None]
  - TRICHIASIS [None]
  - VISION BLURRED [None]
